FAERS Safety Report 5705554-0 (Version None)
Quarter: 2008Q2

REPORT INFORMATION
  Report Type: 
  Country: None (occurrence: None)
  Receive Date: 20080415
  Receipt Date: 20080407
  Transmission Date: 20081010
  Serious: Yes (Other)
  Sender: FDA-Public Use
  Company Number: BR-ASTRAZENECA-2008UW00818

PATIENT
  Age: 60 Year
  Sex: Female
  Weight: 68.5 kg

DRUGS (5)
  1. ARIMIDEX [Suspect]
     Indication: BREAST CANCER
     Route: 048
     Dates: start: 20061101
  2. ALENDRONATE SODIUM [Concomitant]
     Indication: OSTEOPOROSIS
     Route: 048
  3. ZOMETA [Concomitant]
     Indication: OSTEOPOROSIS
     Dosage: 6/6 MONTHS
     Route: 048
     Dates: start: 20071228
  4. CALCIUM [Concomitant]
     Indication: OSTEOPOROSIS
     Route: 048
  5. OMEPRAZOLE [Concomitant]
     Indication: ABDOMINAL PAIN UPPER
     Route: 048

REACTIONS (7)
  - HAIR DISORDER [None]
  - NAUSEA [None]
  - OSTEOARTHRITIS [None]
  - OSTEOPOROSIS [None]
  - SKIN ATROPHY [None]
  - TONGUE DRY [None]
  - WEIGHT LOSS POOR [None]
